FAERS Safety Report 13249481 (Version 1)
Quarter: 2017Q1

REPORT INFORMATION
  Report Type: Spontaneous
  Country: US (occurrence: US)
  Receive Date: 20170218
  Receipt Date: 20170218
  Transmission Date: 20170428
  Serious: No
  Sender: FDA-Public Use
  Company Number: US-ALLERGAN-1667756US

PATIENT
  Age: 60 Year
  Sex: Female

DRUGS (2)
  1. RESTASIS [Suspect]
     Active Substance: CYCLOSPORINE
     Indication: DRY EYE
     Dosage: 2 GTT, BID
     Route: 047
     Dates: start: 201604
  2. REFRESH TEARS [Concomitant]
     Active Substance: CARBOXYMETHYLCELLULOSE SODIUM
     Indication: DRY EYE
     Dosage: UNK UNK, PRN
     Route: 047

REACTIONS (7)
  - Inappropriate schedule of drug administration [Unknown]
  - Drug dose omission [Unknown]
  - Eye pain [Not Recovered/Not Resolved]
  - Eye discharge [Not Recovered/Not Resolved]
  - Drug ineffective [Unknown]
  - Ocular hyperaemia [Not Recovered/Not Resolved]
  - Foreign body sensation in eyes [Not Recovered/Not Resolved]
